FAERS Safety Report 8116649-9 (Version None)
Quarter: 2012Q1

REPORT INFORMATION
  Report Type: 
  Country: None (occurrence: None)
  Receive Date: 20120206
  Receipt Date: 20120126
  Transmission Date: 20120608
  Serious: Yes (Hospitalization)
  Sender: FDA-Public Use
  Company Number: PHEH2011US011755

PATIENT
  Sex: Female
  Weight: 70 kg

DRUGS (4)
  1. PROCRIT [Concomitant]
     Indication: ANAEMIA
     Dosage: 40000 U, WEEKLY
     Route: 058
  2. DANAZOL [Concomitant]
     Indication: ANAEMIA
     Dosage: 20 MG, BID
     Route: 048
  3. PYRIDOXINE HCL [Concomitant]
     Indication: ANAEMIA
     Dosage: 100 MG, DAILY
     Route: 048
  4. EXJADE [Suspect]
     Indication: IRON OVERLOAD
     Dosage: 1000 MG, DAILY
     Route: 048
     Dates: start: 20111123

REACTIONS (3)
  - ANAEMIA [None]
  - HAEMOGLOBIN DECREASED [None]
  - HYPERTENSION [None]
